FAERS Safety Report 20633015 (Version 1)
Quarter: 2022Q1

REPORT INFORMATION
  Report Type: Spontaneous
  Country: US (occurrence: US)
  Receive Date: 20220324
  Receipt Date: 20220324
  Transmission Date: 20220424
  Serious: Yes (Other)
  Sender: FDA-Public Use
  Company Number: US-PFIZER INC-202200425805

PATIENT
  Age: 66 Year
  Sex: Female
  Weight: 71.67 kg

DRUGS (3)
  1. ZOLOFT [Suspect]
     Active Substance: SERTRALINE HYDROCHLORIDE
     Indication: Depression
     Dosage: 100 MG, 1X/DAY
     Route: 048
     Dates: start: 2020
  2. ZOLOFT [Suspect]
     Active Substance: SERTRALINE HYDROCHLORIDE
     Indication: Perinatal depression
  3. LORAZEPAM [Concomitant]
     Active Substance: LORAZEPAM
     Indication: Anxiety
     Dosage: 1 MG, AS NEEDED
     Dates: start: 2001

REACTIONS (2)
  - Coeliac disease [Not Recovered/Not Resolved]
  - Gastrointestinal injury [Unknown]

NARRATIVE: CASE EVENT DATE: 20220311
